FAERS Safety Report 9633308 (Version 2)
Quarter: 2013Q4

REPORT INFORMATION
  Report Type: Spontaneous
  Country: TR (occurrence: TR)
  Receive Date: 20131021
  Receipt Date: 20131107
  Transmission Date: 20140711
  Serious: Yes (Other)
  Sender: FDA-Public Use
  Company Number: TR-RANBAXY-2013RR-74240

PATIENT
  Age: 3 Year
  Sex: Male

DRUGS (9)
  1. PARACETAMOL [Suspect]
     Indication: PRODUCT USED FOR UNKNOWN INDICATION
     Dosage: 250 MG (12.5 MG/KG)
     Route: 048
  2. IBUPROFEN [Suspect]
     Indication: PRODUCT USED FOR UNKNOWN INDICATION
     Dosage: 100 MG
     Route: 048
  3. KETOPROFEN [Suspect]
     Indication: PRODUCT USED FOR UNKNOWN INDICATION
     Dosage: 5 MG
     Route: 065
  4. DIPYRONE [Suspect]
     Indication: PYREXIA
     Dosage: UNK
     Route: 051
  5. PARACETAMOL [Suspect]
     Indication: ALLERGY TEST
     Dosage: 11.7 MG/KG
     Route: 048
  6. IBUPROFEN [Suspect]
     Indication: ALLERGY TEST
     Dosage: 11.4 MG/KG
     Route: 048
  7. KETOPROFEN [Suspect]
     Indication: ALLERGY TEST
     Dosage: 2 MG/KG
     Route: 048
  8. DIPYRONE [Suspect]
     Indication: ALLERGY TEST
     Dosage: 40 MG/KG
     Route: 048
  9. TOLMETIN [Concomitant]
     Indication: ALLERGY TEST
     Dosage: UNK
     Route: 048

REACTIONS (1)
  - Angioedema [Unknown]
